FAERS Safety Report 20672320 (Version 3)
Quarter: 2022Q2

REPORT INFORMATION
  Report Type: Other
  Country: US (occurrence: None)
  Receive Date: 20220405
  Receipt Date: 20220609
  Transmission Date: 20220721
  Serious: Yes (Hospitalization)
  Sender: FDA-Public Use
  Company Number: US-ROCHE-2791128

PATIENT
  Sex: Female

DRUGS (5)
  1. ALECENSA [Suspect]
     Active Substance: ALECTINIB HYDROCHLORIDE
     Indication: Brain neoplasm malignant
     Dosage: TAKE 3 CAPSULES BY MOUTH TWICE A DAY
     Route: 048
  2. ALECENSA [Suspect]
     Active Substance: ALECTINIB HYDROCHLORIDE
     Indication: Lung neoplasm malignant
  3. AUGMENTIN [Concomitant]
     Active Substance: AMOXICILLIN\CLAVULANATE POTASSIUM
  4. CLINDAMYCIN [Concomitant]
     Active Substance: CLINDAMYCIN
  5. ECOTRIN [Concomitant]
     Active Substance: ASPIRIN

REACTIONS (15)
  - Cerebral disorder [Unknown]
  - Claustrophobia [Unknown]
  - Malaise [Unknown]
  - Diarrhoea [Unknown]
  - Intentional product misuse [Unknown]
  - Nervousness [Unknown]
  - Emotional distress [Unknown]
  - Constipation [Unknown]
  - Hypotension [Unknown]
  - Memory impairment [Unknown]
  - Abdominal pain upper [Unknown]
  - Colitis [Unknown]
  - Neuropathy peripheral [Unknown]
  - Hypoaesthesia [Unknown]
  - Hypertension [Unknown]
